FAERS Safety Report 16045735 (Version 1)
Quarter: 2019Q1

REPORT INFORMATION
  Report Type: Spontaneous
  Country: CN (occurrence: CN)
  Receive Date: 20190307
  Receipt Date: 20190307
  Transmission Date: 20190418
  Serious: Yes (Other)
  Sender: FDA-Public Use
  Company Number: CN-ROCHE-2257916

PATIENT
  Age: 61 Year
  Sex: Male

DRUGS (5)
  1. PHARMORUBICIN [Concomitant]
     Active Substance: EPIRUBICIN
     Indication: DIFFUSE LARGE B-CELL LYMPHOMA STAGE IV
     Dosage: DAY 1, 2
     Route: 065
     Dates: start: 20170515
  2. MABTHERA [Suspect]
     Active Substance: RITUXIMAB
     Indication: DIFFUSE LARGE B-CELL LYMPHOMA STAGE IV
     Dosage: ON DAY 0
     Route: 065
     Dates: start: 20170515
  3. VINDESINE [Concomitant]
     Active Substance: VINDESINE
     Indication: DIFFUSE LARGE B-CELL LYMPHOMA STAGE IV
     Dosage: DAY 1
     Route: 065
     Dates: start: 20170515
  4. CYCLOPHOSPHAMIDE. [Concomitant]
     Active Substance: CYCLOPHOSPHAMIDE
     Indication: DIFFUSE LARGE B-CELL LYMPHOMA STAGE IV
     Dosage: DAY 1
     Route: 065
     Dates: start: 20170515
  5. PREDNISONE. [Concomitant]
     Active Substance: PREDNISONE
     Indication: DIFFUSE LARGE B-CELL LYMPHOMA STAGE IV
     Dosage: DAY 1-5
     Route: 065
     Dates: start: 20170515

REACTIONS (12)
  - Abdominal pain [Recovering/Resolving]
  - Pulmonary calcification [Recovering/Resolving]
  - Pulmonary fibrosis [Recovering/Resolving]
  - Granulocytopenia [Unknown]
  - Septic shock [Unknown]
  - Gastrointestinal perforation [Unknown]
  - Pyrexia [Recovering/Resolving]
  - Intestinal obstruction [Recovering/Resolving]
  - Lung infection [Unknown]
  - Iron deficiency anaemia [Unknown]
  - Bone marrow failure [Unknown]
  - Peritonitis [Unknown]

NARRATIVE: CASE EVENT DATE: 20170611
